FAERS Safety Report 12120383 (Version 2)
Quarter: 2016Q1

REPORT INFORMATION
  Report Type: Spontaneous
  Country: US (occurrence: US)
  Receive Date: 20160226
  Receipt Date: 20160314
  Transmission Date: 20160526
  Serious: Yes (Life-Threatening, Hospitalization, Other)
  Sender: FDA-Public Use
  Company Number: PHEH2016US004524

PATIENT
  Age: 62 Year
  Sex: Male

DRUGS (1)
  1. GILENYA [Suspect]
     Active Substance: FINGOLIMOD HYDROCHLORIDE
     Indication: MULTIPLE SCLEROSIS
     Dosage: 0.5 MG, QD
     Route: 048
     Dates: start: 20130122

REACTIONS (4)
  - Meningitis cryptococcal [Recovering/Resolving]
  - Fatigue [Unknown]
  - Amnesia [Unknown]
  - Ear disorder [Unknown]

NARRATIVE: CASE EVENT DATE: 201602
